FAERS Safety Report 14813921 (Version 1)
Quarter: 2018Q2

REPORT INFORMATION
  Report Type: Spontaneous
  Country: US (occurrence: US)
  Receive Date: 20180426
  Receipt Date: 20180426
  Transmission Date: 20180711
  Serious: Yes (Other)
  Sender: FDA-Public Use
  Company Number: US-ASTELLAS-2018US016577

PATIENT
  Sex: Male

DRUGS (1)
  1. XTANDI [Suspect]
     Active Substance: ENZALUTAMIDE
     Indication: PROSTATE CANCER
     Route: 048
     Dates: start: 20180302

REACTIONS (6)
  - Mental status changes [Unknown]
  - Pain in extremity [Unknown]
  - Weight increased [Unknown]
  - Hot flush [Unknown]
  - Balance disorder [Unknown]
  - Abdominal distension [Unknown]
